FAERS Safety Report 13796195 (Version 1)
Quarter: 2017Q3

REPORT INFORMATION
  Report Type: Report from Study
  Country: CA (occurrence: CA)
  Receive Date: 20170726
  Receipt Date: 20170726
  Transmission Date: 20171127
  Serious: Yes (Other)
  Sender: FDA-Public Use
  Company Number: PHHY2017CA106871

PATIENT
  Sex: Male

DRUGS (2)
  1. MEKINIST [Suspect]
     Active Substance: TRAMETINIB DIMETHYL SULFOXIDE
     Indication: METASTATIC MALIGNANT MELANOMA
     Dosage: 2 MG, UNK
     Route: 048
     Dates: start: 20170712
  2. TAFINLAR [Suspect]
     Active Substance: DABRAFENIB MESYLATE
     Indication: METASTATIC MALIGNANT MELANOMA
     Dosage: 150 MG, UNK
     Route: 048
     Dates: start: 20170712

REACTIONS (10)
  - Weight decreased [Unknown]
  - Inappropriate schedule of drug administration [Unknown]
  - Somnolence [Unknown]
  - Heat exhaustion [Unknown]
  - Muscle atrophy [Unknown]
  - Deafness [Unknown]
  - Nausea [Unknown]
  - Ageusia [Unknown]
  - Abdominal discomfort [Unknown]
  - Feeling abnormal [Unknown]
